FAERS Safety Report 23801263 (Version 2)
Quarter: 2024Q2

REPORT INFORMATION
  Report Type: Spontaneous
  Country: US (occurrence: US)
  Receive Date: 20240430
  Receipt Date: 20240605
  Transmission Date: 20240716
  Serious: No
  Sender: FDA-Public Use
  Company Number: US-SA-SAC20240424000048

PATIENT
  Sex: Female

DRUGS (1)
  1. AUBAGIO [Suspect]
     Active Substance: TERIFLUNOMIDE
     Dosage: UNK
     Route: 065

REACTIONS (6)
  - Osteoporosis [Unknown]
  - Compression fracture [Unknown]
  - Intervertebral disc protrusion [Unknown]
  - Pruritus [Unknown]
  - Tooth extraction [Unknown]
  - Product dose omission in error [Unknown]
